FAERS Safety Report 22339617 (Version 1)
Quarter: 2023Q2

REPORT INFORMATION
  Report Type: Spontaneous
  Country: US (occurrence: US)
  Receive Date: 20230518
  Receipt Date: 20230518
  Transmission Date: 20230721
  Serious: Yes (Death, Hospitalization, Other)
  Sender: FDA-Public Use
  Company Number: US-AMGEN-USASP2023082138

PATIENT
  Age: 60 Year
  Sex: Female

DRUGS (2)
  1. BEVACIZUMAB [Suspect]
     Active Substance: BEVACIZUMAB
     Indication: Squamous cell carcinoma of the cervix
     Dosage: UNK
     Route: 065
  2. PEMBROLIZUMAB [Concomitant]
     Active Substance: PEMBROLIZUMAB
     Indication: Squamous cell carcinoma of the cervix
     Dosage: UNK
     Route: 065

REACTIONS (20)
  - Squamous cell carcinoma of the cervix [Fatal]
  - Abdominal wound dehiscence [Unknown]
  - Pneumoperitoneum [Unknown]
  - Clostridium difficile infection [Unknown]
  - Large intestine perforation [Unknown]
  - Hypervolaemia [Unknown]
  - Fasciitis [Unknown]
  - Peritonitis [Unknown]
  - Gastrointestinal necrosis [Unknown]
  - Wound evisceration [Unknown]
  - Muscle oedema [Unknown]
  - Hypophagia [Unknown]
  - Incisional hernia [Unknown]
  - Malignant ascites [Unknown]
  - Pleural effusion [Unknown]
  - Leukocytosis [Unknown]
  - Septic shock [Unknown]
  - Cellulitis [Unknown]
  - Hyponatraemia [Unknown]
  - Ileus [Unknown]
